FAERS Safety Report 19106784 (Version 1)
Quarter: 2021Q2

REPORT INFORMATION
  Report Type: Spontaneous
  Country: US (occurrence: US)
  Receive Date: 20210407
  Receipt Date: 20210407
  Transmission Date: 20210717
  Serious: Yes (Life-Threatening)
  Sender: FDA-Public Use
  Company Number: None

PATIENT
  Age: 10 Year
  Sex: Male
  Weight: 21.6 kg

DRUGS (8)
  1. PERIACTIN [Concomitant]
     Active Substance: CYPROHEPTADINE HYDROCHLORIDE
  2. MULTIVITAMIN [Concomitant]
     Active Substance: VITAMINS
  3. SEROQUEL [Suspect]
     Active Substance: QUETIAPINE FUMARATE
  4. ALBUTEROL. [Concomitant]
     Active Substance: ALBUTEROL
  5. GUANFACINE ER [Suspect]
     Active Substance: GUANFACINE
     Indication: ATTENTION DEFICIT HYPERACTIVITY DISORDER
     Dosage: ?          QUANTITY:1 TABLET(S);?
     Route: 048
     Dates: end: 20210407
  6. ZOLOFT [Concomitant]
     Active Substance: SERTRALINE HYDROCHLORIDE
  7. FOCALIN [Concomitant]
     Active Substance: DEXMETHYLPHENIDATE HYDROCHLORIDE
  8. MCT OIL [Concomitant]

REACTIONS (6)
  - Dizziness [None]
  - Product commingling [None]
  - Hypoxia [None]
  - Product quality issue [None]
  - Sedation [None]
  - Cyanosis [None]

NARRATIVE: CASE EVENT DATE: 20210315
